FAERS Safety Report 14587416 (Version 1)
Quarter: 2018Q1

REPORT INFORMATION
  Report Type: Spontaneous
  Country: US (occurrence: US)
  Receive Date: 20180228
  Receipt Date: 20180228
  Transmission Date: 20180509
  Serious: Yes (Disabling, Other)
  Sender: FDA-Public Use
  Company Number: None

PATIENT
  Age: 47 Month
  Sex: Female
  Weight: 105.75 kg

DRUGS (1)
  1. VENLAFAXINE [Suspect]
     Active Substance: VENLAFAXINE HYDROCHLORIDE
     Indication: ANXIETY
     Route: 048

REACTIONS (8)
  - Drug dose omission [None]
  - Paraesthesia [None]
  - Product quality issue [None]
  - Unevaluable event [None]
  - Withdrawal syndrome [None]
  - Tremor [None]
  - Confusional state [None]
  - Drug dependence [None]

NARRATIVE: CASE EVENT DATE: 20170810
